FAERS Safety Report 5593607-X (Version None)
Quarter: 2008Q1

REPORT INFORMATION
  Report Type: 
  Country: None (occurrence: None)
  Receive Date: 20080116
  Receipt Date: 20080104
  Transmission Date: 20080703
  Serious: Yes (Other)
  Sender: FDA-Public Use
  Company Number: IE-RANBAXY-2008RR-12453

PATIENT

DRUGS (1)
  1. PINACLOR ORAL SUSPENSION 125MG/5ML [Suspect]
     Dosage: UNK
     Route: 048
     Dates: start: 20071229, end: 20080101

REACTIONS (2)
  - EYE DISORDER [None]
  - PSYCHOMOTOR HYPERACTIVITY [None]
